FAERS Safety Report 25865041 (Version 1)
Quarter: 2025Q3

REPORT INFORMATION
  Report Type: Spontaneous
  Country: CA (occurrence: CA)
  Receive Date: 20250930
  Receipt Date: 20250930
  Transmission Date: 20251020
  Serious: Yes (Death)
  Sender: AMGEN
  Company Number: CA-BEH-2025219939

PATIENT

DRUGS (1)
  1. AVACOPAN [Suspect]
     Active Substance: AVACOPAN
     Indication: Product used for unknown indication
     Dosage: 10 MG, OD (300 MG ONCE MONTH)
     Route: 048

REACTIONS (2)
  - Death [Fatal]
  - Intentional underdose [Unknown]
